FAERS Safety Report 6015930-7 (Version None)
Quarter: 2008Q4

REPORT INFORMATION
  Report Type: 
  Country: None (occurrence: None)
  Receive Date: 20081222
  Receipt Date: 20081212
  Transmission Date: 20090506
  Serious: Yes (Hospitalization)
  Sender: FDA-Public Use
  Company Number: AR-AMGEN-US324170

PATIENT
  Sex: Female
  Weight: 70 kg

DRUGS (6)
  1. ENBREL [Suspect]
     Indication: RHEUMATOID ARTHRITIS
     Route: 058
     Dates: start: 20080228, end: 20081115
  2. DILTIAZEM [Concomitant]
     Route: 048
  3. NAPROXEN [Concomitant]
     Indication: INFLAMMATION
     Route: 048
  4. PREDNISONE [Concomitant]
     Route: 048
  5. METHOTREXATE [Concomitant]
     Indication: RHEUMATOID ARTHRITIS
     Route: 048
  6. FOLIC ACID [Concomitant]
     Indication: ANAEMIA
     Route: 048

REACTIONS (8)
  - EYELID OEDEMA [None]
  - FATIGUE [None]
  - HYPERSENSITIVITY [None]
  - LARYNGEAL OEDEMA [None]
  - PRURITUS [None]
  - SWELLING FACE [None]
  - TACHYCARDIA [None]
  - VOMITING [None]
